FAERS Safety Report 4659894-7 (Version None)
Quarter: 2005Q2

REPORT INFORMATION
  Report Type: 
  Country: None (occurrence: None)
  Receive Date: 20050510
  Receipt Date: 20041210
  Transmission Date: 20051028
  Serious: Yes (Hospitalization)
  Sender: FDA-Public Use
  Company Number: PAR_0028_2005

PATIENT
  Age: 82 Year
  Sex: Female

DRUGS (8)
  1. ISOPTIN [Suspect]
     Dosage: 80 MG TID PO
     Route: 048
  2. DIGOXIN [Suspect]
     Indication: ATRIAL FLUTTER
     Dosage: 0.1 MG QDAY PO
     Route: 048
     Dates: start: 20010101, end: 20041110
  3. DIGOXIN [Suspect]
     Indication: ATRIAL FIBRILLATION
     Dosage: 0.3 MG QDAY PO
     Route: 048
     Dates: start: 20041110, end: 20041119
  4. DIGOXIN [Suspect]
     Indication: ATRIAL FLUTTER
     Dosage: 0.3 MG QDAY PO
     Route: 048
     Dates: start: 20041110, end: 20041119
  5. NITROGLYCERIN [Concomitant]
  6. SIMVASTATIN [Concomitant]
  7. VENLAFAXINE HCL [Concomitant]
  8. INSULIN [Concomitant]

REACTIONS (12)
  - ABDOMINAL PAIN UPPER [None]
  - ANOREXIA [None]
  - BLOOD CREATININE INCREASED [None]
  - CARDIOACTIVE DRUG LEVEL INCREASED [None]
  - DIARRHOEA [None]
  - DRUG EFFECT DECREASED [None]
  - ELECTROCARDIOGRAM ST SEGMENT ABNORMAL [None]
  - HYPERKALAEMIA [None]
  - NAUSEA [None]
  - OVERDOSE [None]
  - POLLAKIURIA [None]
  - VOMITING [None]
